FAERS Safety Report 18283361 (Version 2)
Quarter: 2020Q3

REPORT INFORMATION
  Report Type: Report from Study
  Country: US (occurrence: US)
  Receive Date: 20200918
  Receipt Date: 20200930
  Transmission Date: 20201103
  Serious: Yes (Other)
  Sender: FDA-Public Use
  Company Number: US-EMD SERONO-9185596

PATIENT
  Sex: Female

DRUGS (1)
  1. MAVENCLAD [Suspect]
     Active Substance: CLADRIBINE
     Indication: MULTIPLE SCLEROSIS
     Dosage: YEAR ONE THERAPY: TOTAL CUMULATIVE DOSE 200MG.
     Route: 048
     Dates: start: 20190904

REACTIONS (2)
  - White blood cell count decreased [Not Recovered/Not Resolved]
  - Lymphocyte count abnormal [Unknown]
